FAERS Safety Report 20980549 (Version 1)
Quarter: 2022Q2

REPORT INFORMATION
  Report Type: Spontaneous
  Country: IT (occurrence: IT)
  Receive Date: 20220620
  Receipt Date: 20220620
  Transmission Date: 20220721
  Serious: Yes (Other)
  Sender: FDA-Public Use
  Company Number: IT-SUN PHARMACEUTICAL INDUSTRIES LTD-2022R1-341110

PATIENT
  Age: 15 Year
  Sex: Female

DRUGS (2)
  1. TRAMADOL [Suspect]
     Active Substance: TRAMADOL
     Indication: Hypertension
     Route: 065
  2. ALIZAPRIDE [Suspect]
     Active Substance: ALIZAPRIDE
     Indication: Hypertension
     Route: 065

REACTIONS (1)
  - Kounis syndrome [Unknown]
